FAERS Safety Report 4796746-6 (Version None)
Quarter: 2005Q4

REPORT INFORMATION
  Report Type: 
  Country: None (occurrence: None)
  Receive Date: 20051007
  Receipt Date: 20050927
  Transmission Date: 20060501
  Serious: Yes (Hospitalization, Other)
  Sender: FDA-Public Use
  Company Number: 2005AP000750

PATIENT
  Age: 1 Hour
  Sex: Male

DRUGS (1)
  1. PAROXETINE HCL [Suspect]
     Indication: DEPRESSION
     Dosage: 40 MG; QD; IU
     Route: 015

REACTIONS (14)
  - ALPHA HAEMOLYTIC STREPTOCOCCAL INFECTION [None]
  - ASPIRATION [None]
  - BLOOD SODIUM DECREASED [None]
  - CAESAREAN SECTION [None]
  - DRUG EXPOSURE DURING PREGNANCY [None]
  - DRUG WITHDRAWAL SYNDROME NEONATAL [None]
  - FEELING JITTERY [None]
  - FOETAL DISTRESS SYNDROME [None]
  - HYPERTONIA NEONATAL [None]
  - INAPPROPRIATE ANTIDIURETIC HORMONE SECRETION [None]
  - OPISTHOTONUS [None]
  - PYREXIA [None]
  - SALIVARY HYPERSECRETION [None]
  - SEPSIS [None]
